FAERS Safety Report 5482603-9 (Version None)
Quarter: 2007Q4

REPORT INFORMATION
  Report Type: 
  Country: None (occurrence: None)
  Receive Date: 20071011
  Receipt Date: 20070821
  Transmission Date: 20080405
  Serious: Yes (Hospitalization)
  Sender: FDA-Public Use
  Company Number: A0668752A

PATIENT
  Age: 76 Year
  Sex: Female
  Weight: 69 kg

DRUGS (9)
  1. TYKERB [Suspect]
     Indication: DRUG USE FOR UNKNOWN INDICATION
     Dosage: 1250MG PER DAY
  2. XELODA [Suspect]
     Indication: DRUG USE FOR UNKNOWN INDICATION
     Dosage: 500MG VARIABLE DOSE
     Route: 048
  3. EFFEXOR [Concomitant]
  4. NORVASC [Concomitant]
  5. LIPITOR [Concomitant]
  6. CALCIUM [Concomitant]
  7. VITAMIN D [Concomitant]
  8. PRINIVIL [Concomitant]
  9. ASPIRIN [Concomitant]

REACTIONS (2)
  - ADVERSE EVENT [None]
  - DIARRHOEA [None]
